FAERS Safety Report 15963150 (Version 1)
Quarter: 2019Q1

REPORT INFORMATION
  Report Type: Spontaneous
  Country: US (occurrence: US)
  Receive Date: 20190214
  Receipt Date: 20190214
  Transmission Date: 20190417
  Serious: No
  Sender: FDA-Public Use
  Company Number: US-ALLERGAN-1823114US

PATIENT
  Age: 12 Year
  Sex: Female
  Weight: 42.18 kg

DRUGS (2)
  1. CETAPHIL [Concomitant]
     Active Substance: AVOBENZONE\OCTOCRYLENE\TRICLOSAN
     Dosage: UNK
     Dates: start: 20180319
  2. TAZAROTENE - BP [Suspect]
     Active Substance: TAZAROTENE
     Indication: ACNE
     Dosage: ^COIN^ SIDE AMOUNT EVERY OTHER NIGHT
     Route: 061
     Dates: start: 20180323, end: 20180323

REACTIONS (4)
  - Application site swelling [Recovering/Resolving]
  - Application site erythema [Recovering/Resolving]
  - Application site pruritus [Recovering/Resolving]
  - Application site dermatitis [Recovering/Resolving]

NARRATIVE: CASE EVENT DATE: 20180323
